FAERS Safety Report 5113516-X (Version None)
Quarter: 2006Q3

REPORT INFORMATION
  Report Type: 
  Country: None (occurrence: None)
  Receive Date: 20060920
  Receipt Date: 20060904
  Transmission Date: 20061208
  Serious: Yes (Hospitalization)
  Sender: FDA-Public Use
  Company Number: FI200609000687

PATIENT
  Age: 66 Year
  Sex: Male

DRUGS (4)
  1. ALIMTA [Suspect]
     Indication: MESOTHELIOMA
     Dosage: INTRAVENOUS
     Route: 042
     Dates: start: 20060530, end: 20060620
  2. CISPLATIN [Concomitant]
  3. NEXIUM/UNK/(ESOMEPRAZOLE) [Concomitant]
  4. FOLVITE/CAN/(FOLIC ACID) [Concomitant]

REACTIONS (9)
  - APHASIA [None]
  - BRAIN OEDEMA [None]
  - DRUG TOXICITY [None]
  - DYSARTHRIA [None]
  - LOSS OF CONSCIOUSNESS [None]
  - METASTASES TO CENTRAL NERVOUS SYSTEM [None]
  - METASTASES TO MENINGES [None]
  - REVERSIBLE POSTERIOR LEUKOENCEPHALOPATHY SYNDROME [None]
  - VASCULITIS [None]
